FAERS Safety Report 25907881 (Version 1)
Quarter: 2025Q4

REPORT INFORMATION
  Report Type: Report from Study
  Country: US (occurrence: US)
  Receive Date: 20251010
  Receipt Date: 20251010
  Transmission Date: 20260117
  Serious: Yes (Other)
  Sender: ABBVIE
  Company Number: US-ABBVIE-6245683

PATIENT
  Age: 29 Year
  Sex: Female

DRUGS (2)
  1. RINVOQ [Suspect]
     Active Substance: UPADACITINIB
     Indication: Psoriatic arthropathy
     Dosage: LAST ADMIN DATE: 2025
     Route: 048
     Dates: start: 20250324
  2. RINVOQ [Suspect]
     Active Substance: UPADACITINIB
     Indication: Psoriatic arthropathy
     Dosage: LAST ADMIN DATE: MAR 2025
     Route: 048
     Dates: start: 20250310

REACTIONS (9)
  - Keratomileusis [Recovered/Resolved]
  - Eye abrasion [Not Recovered/Not Resolved]
  - Arthropod sting [Unknown]
  - Therapeutic response unexpected [Recovered/Resolved]
  - Food allergy [Unknown]
  - Superficial injury of eye [Unknown]
  - Wisdom teeth removal [Unknown]
  - Psoriasis [Unknown]
  - Pain [Unknown]

NARRATIVE: CASE EVENT DATE: 20250101
